FAERS Safety Report 20002013 (Version 1)
Quarter: 2021Q4

REPORT INFORMATION
  Report Type: Spontaneous
  Country: US (occurrence: US)
  Receive Date: 20211027
  Receipt Date: 20211027
  Transmission Date: 20220303
  Serious: No
  Sender: FDA-Public Use
  Company Number: US-NOVARTISTESTPH-NVSC2021US239912

PATIENT
  Age: 3 Year
  Sex: Female
  Weight: 14.51 kg

DRUGS (3)
  1. ILARIS [Suspect]
     Active Substance: CANAKINUMAB
     Indication: Pyrexia
     Dosage: 30 MG, Q4W (TWICE)
     Route: 058
     Dates: start: 20210813
  2. ILARIS [Suspect]
     Active Substance: CANAKINUMAB
     Dosage: UNK (2ND SHOT)
     Route: 065
     Dates: start: 20210903
  3. ILARIS [Suspect]
     Active Substance: CANAKINUMAB
     Dosage: UNK (3RD SLOT)
     Route: 065
     Dates: start: 20211015

REACTIONS (1)
  - Vomiting [Recovered/Resolved]

NARRATIVE: CASE EVENT DATE: 20210820
